FAERS Safety Report 4892607-2 (Version None)
Quarter: 2006Q1

REPORT INFORMATION
  Report Type: 
  Country: None (occurrence: None)
  Receive Date: 20060125
  Receipt Date: 20060125
  Transmission Date: 20060701
  Serious: Yes (Hospitalization)
  Sender: FDA-Public Use
  Company Number: None

PATIENT
  Age: 36 Year
  Sex: Female
  Weight: 48.2 kg

DRUGS (1)
  1. TEMAZEPAM [Suspect]
     Indication: ANXIETY
     Dosage: 45 MG HS PO
     Route: 048
     Dates: start: 20060115, end: 20060117

REACTIONS (1)
  - DRUG TOXICITY [None]
